FAERS Safety Report 24317184 (Version 1)
Quarter: 2024Q3

REPORT INFORMATION
  Report Type: Spontaneous
  Country: US (occurrence: None)
  Receive Date: 20240912
  Receipt Date: 20240912
  Transmission Date: 20241016
  Serious: Yes (Other)
  Sender: Public
  Company Number: None

PATIENT
  Age: 41 Year
  Sex: Male
  Weight: 124.2 kg

DRUGS (1)
  1. WEGOVY [Suspect]
     Active Substance: SEMAGLUTIDE
     Indication: Weight decreased
     Dates: start: 20240817, end: 20240912

REACTIONS (5)
  - Vomiting [None]
  - Diarrhoea [None]
  - Nausea [None]
  - Pain [None]
  - Neoplasm malignant [None]

NARRATIVE: CASE EVENT DATE: 20240908
